FAERS Safety Report 7526602-1 (Version None)
Quarter: 2011Q2

REPORT INFORMATION
  Report Type: 
  Country: None (occurrence: None)
  Receive Date: 20110606
  Receipt Date: 20110527
  Transmission Date: 20111010
  Serious: Yes (Other)
  Sender: FDA-Public Use
  Company Number: US-ABBOTT-11P-163-0729292-00

PATIENT
  Sex: Male
  Weight: 114.41 kg

DRUGS (7)
  1. OXYCONTIN [Concomitant]
     Indication: BACK PAIN
  2. HUMIRA [Suspect]
     Indication: RHEUMATOID ARTHRITIS
  3. ASACOL [Concomitant]
     Indication: CROHN'S DISEASE
  4. HUMIRA [Suspect]
     Indication: CROHN'S DISEASE
     Route: 058
     Dates: start: 20080101
  5. OXYCODONE HCL [Concomitant]
     Indication: BACK PAIN
  6. XANAX [Concomitant]
     Indication: BACK PAIN
  7. XANAX [Concomitant]
     Indication: CROHN'S DISEASE

REACTIONS (10)
  - SKIN DISCOLOURATION [None]
  - DYSURIA [None]
  - URTICARIA [None]
  - NEPHROLITHIASIS [None]
  - RASH [None]
  - RASH MACULAR [None]
  - HYPOAESTHESIA [None]
  - ANURIA [None]
  - PARAESTHESIA [None]
  - ARTHRALGIA [None]
